FAERS Safety Report 25845917 (Version 1)
Quarter: 2025Q3

REPORT INFORMATION
  Report Type: Spontaneous
  Country: EU (occurrence: EU)
  Receive Date: 20250925
  Receipt Date: 20250925
  Transmission Date: 20251020
  Serious: Yes (Other)
  Sender: RANBAXY
  Company Number: EU-LRB-01064299

PATIENT
  Age: 57 Year
  Sex: Male

DRUGS (1)
  1. SERTRALINE [Suspect]
     Active Substance: SERTRALINE HYDROCHLORIDE
     Indication: Depression
     Dosage: 50 MILLIGRAM, DAILY, 1D1
     Route: 048
     Dates: start: 20250505, end: 20250527

REACTIONS (1)
  - Inappropriate antidiuretic hormone secretion [Recovering/Resolving]
